FAERS Safety Report 25913874 (Version 1)
Quarter: 2025Q4

REPORT INFORMATION
  Report Type: Spontaneous
  Country: US (occurrence: US)
  Receive Date: 20251013
  Receipt Date: 20251013
  Transmission Date: 20260117
  Serious: Yes (Hospitalization)
  Sender: BAUSCH AND LOMB
  Company Number: US-BAUSCH-BH-2025-018508

PATIENT
  Age: 57 Year
  Sex: Female

DRUGS (1)
  1. NITROGLYCERIN [Suspect]
     Active Substance: NITROGLYCERIN
     Indication: Analgesic therapy
     Route: 065

REACTIONS (2)
  - Blood pressure increased [Recovered/Resolved]
  - Prescription drug used without a prescription [Unknown]
